FAERS Safety Report 5513917-1 (Version None)
Quarter: 2007Q4

REPORT INFORMATION
  Report Type: 
  Country: None (occurrence: None)
  Receive Date: 20071109
  Receipt Date: 20071109
  Transmission Date: 20080405
  Serious: Yes (Life-Threatening, Hospitalization)
  Sender: FDA-Public Use
  Company Number: None

PATIENT
  Age: 83 Year
  Sex: Male
  Weight: 65.7716 kg

DRUGS (1)
  1. ALEVE [Suspect]
     Indication: HEADACHE
     Dosage: 1 220 MG TABLET ONCE PO
     Route: 048
     Dates: start: 20070819, end: 20070819

REACTIONS (4)
  - FLUSHING [None]
  - LOSS OF CONSCIOUSNESS [None]
  - NAUSEA [None]
  - PRURITUS GENERALISED [None]
